FAERS Safety Report 5692302-6 (Version None)
Quarter: 2008Q2

REPORT INFORMATION
  Report Type: 
  Country: None (occurrence: None)
  Receive Date: 20080402
  Receipt Date: 20080311
  Transmission Date: 20081010
  Serious: Yes (Hospitalization)
  Sender: FDA-Public Use
  Company Number: JP-PFIZER INC-2008027841

PATIENT
  Sex: Male

DRUGS (3)
  1. MIGLITOL TABLET [Suspect]
     Indication: DIABETES MELLITUS
     Dosage: DAILY DOSE:50MG
     Route: 048
     Dates: start: 20080120, end: 20080101
  2. LANTUS [Concomitant]
     Route: 058
  3. HUMALOG [Concomitant]
     Route: 058

REACTIONS (5)
  - ANOREXIA [None]
  - CHROMATURIA [None]
  - JAUNDICE [None]
  - LIVER DISORDER [None]
  - MALAISE [None]
